FAERS Safety Report 6525506-0 (Version None)
Quarter: 2010Q1

REPORT INFORMATION
  Report Type: 
  Country: None (occurrence: None)
  Receive Date: 20100104
  Receipt Date: 20091221
  Transmission Date: 20100710
  Serious: Yes (Other)
  Sender: FDA-Public Use
  Company Number: BR-PFIZER INC-2009312403

PATIENT
  Age: 55 Year
  Sex: Female
  Weight: 76 kg

DRUGS (5)
  1. FRONTAL [Suspect]
     Indication: PANIC DISORDER
     Dosage: 0.125 MG, AS NEEDED
     Route: 048
     Dates: start: 19940101
  2. ALPRAZOLAM [Concomitant]
     Indication: PANIC DISORDER
     Dosage: UNK, AS NEEDED
     Route: 048
  3. ACETYLSALICYLIC ACID [Concomitant]
     Dosage: UNK
  4. APROVEL [Concomitant]
     Dosage: UNK
  5. EZETROL [Concomitant]
     Dosage: UNK

REACTIONS (3)
  - CEREBROVASCULAR ACCIDENT [None]
  - DRUG INEFFECTIVE [None]
  - HEADACHE [None]
